FAERS Safety Report 18329380 (Version 1)
Quarter: 2020Q3

REPORT INFORMATION
  Report Type: Spontaneous
  Country: US (occurrence: US)
  Receive Date: 20200930
  Receipt Date: 20200930
  Transmission Date: 20201103
  Serious: Yes (Other)
  Sender: FDA-Public Use
  Company Number: None

PATIENT
  Age: 46 Year
  Sex: Female
  Weight: 90 kg

DRUGS (4)
  1. PANTOPRAZOLE [Suspect]
     Active Substance: PANTOPRAZOLE
     Indication: GASTROOESOPHAGEAL REFLUX DISEASE
     Route: 048
     Dates: start: 20200825, end: 20200930
  2. CPAP [Concomitant]
     Active Substance: DEVICE
  3. MY KIND 50+ MULIT VIT [Concomitant]
  4. MAGNESIUM [Concomitant]
     Active Substance: MAGNESIUM

REACTIONS (12)
  - Abdominal distension [None]
  - Tachyphrenia [None]
  - Insomnia [None]
  - Throat tightness [None]
  - Gastrooesophageal reflux disease [None]
  - Aphasia [None]
  - Confusional state [None]
  - Angina pectoris [None]
  - Cognitive disorder [None]
  - Rash [None]
  - Chapped lips [None]
  - Abdominal pain upper [None]

NARRATIVE: CASE EVENT DATE: 20200930
